FAERS Safety Report 8819336 (Version 1)
Quarter: 2012Q4

REPORT INFORMATION
  Report Type: Spontaneous
  Country: DE (occurrence: None)
  Receive Date: 20121003
  Receipt Date: 20121003
  Transmission Date: 20130627
  Serious: Yes (Hospitalization, Other)
  Sender: FDA-Public Use
  Company Number: FK201202742

PATIENT
  Age: 49 Year
  Sex: Female

DRUGS (3)
  1. DEXAMETHASONE [Suspect]
     Route: 051
  2. DEXAMETHASONE PHOSPHATE [Suspect]
     Route: 051
  3. DICLOFENAC [Suspect]
     Route: 051

REACTIONS (3)
  - Skin necrosis [None]
  - Fat necrosis [None]
  - Drug administration error [None]
